FAERS Safety Report 9761604 (Version 3)
Quarter: 2014Q1

REPORT INFORMATION
  Report Type: Spontaneous
  Country: US (occurrence: US)
  Receive Date: 20131216
  Receipt Date: 20140303
  Transmission Date: 20141002
  Serious: No
  Sender: FDA-Public Use
  Company Number: US-PFIZER INC-2013352501

PATIENT
  Sex: Female

DRUGS (1)
  1. ESTRING [Suspect]
     Dosage: 2 MG, UNK
     Route: 067

REACTIONS (2)
  - Product quality issue [Unknown]
  - Vulvovaginal discomfort [Unknown]
